FAERS Safety Report 7380645-X (Version None)
Quarter: 2011Q1

REPORT INFORMATION
  Report Type: 
  Country: None (occurrence: None)
  Receive Date: 20110325
  Receipt Date: 20110325
  Transmission Date: 20110831
  Serious: No
  Sender: FDA-Public Use
  Company Number: None

PATIENT
  Sex: Male
  Weight: 120.2032 kg

DRUGS (2)
  1. FLEBOGAMMA [Suspect]
  2. FLEBOGAMMA [Suspect]
     Indication: DEMYELINATING POLYNEUROPATHY
     Dosage: 39 GRAMS TITRATION IV DRIP
     Route: 041
     Dates: start: 20110316, end: 20110316

REACTIONS (2)
  - CHILLS [None]
  - BLOOD PRESSURE INCREASED [None]
